FAERS Safety Report 6506193-4 (Version None)
Quarter: 2009Q4

REPORT INFORMATION
  Report Type: 
  Country: None (occurrence: None)
  Receive Date: 20091218
  Receipt Date: 20091211
  Transmission Date: 20100525
  Serious: Yes (Death, Hospitalization)
  Sender: FDA-Public Use
  Company Number: US-PURDUE-USA-2009-0041489

PATIENT
  Age: 49 Year
  Sex: Male
  Weight: 84.807 kg

DRUGS (3)
  1. TRAMADOL HCL [Suspect]
     Indication: DRUG USE FOR UNKNOWN INDICATION
  2. METHAMPHETAMINE [Suspect]
     Indication: DRUG USE FOR UNKNOWN INDICATION
  3. TETRAHYDROCANNABINOL [Suspect]
     Indication: DRUG USE FOR UNKNOWN INDICATION

REACTIONS (4)
  - ARRHYTHMIA [None]
  - COMPLETED SUICIDE [None]
  - DELIRIUM [None]
  - OVERDOSE [None]
